FAERS Safety Report 9789241 (Version 2)
Quarter: 2013Q4

REPORT INFORMATION
  Report Type: Spontaneous
  Country: US (occurrence: US)
  Receive Date: 20131230
  Receipt Date: 20131230
  Transmission Date: 20140711
  Serious: No
  Sender: FDA-Public Use
  Company Number: US-BAXTER-2013BAX002748

PATIENT
  Sex: Female

DRUGS (3)
  1. ARALAST NP [Suspect]
     Indication: PRODUCT USED FOR UNKNOWN INDICATION
     Route: 065
     Dates: start: 201212
  2. CLARITIN [Concomitant]
     Indication: HYPERSENSITIVITY
     Route: 065
  3. SUDAFED [Concomitant]
     Indication: HYPERSENSITIVITY
     Route: 065

REACTIONS (6)
  - Hot flush [Unknown]
  - Erythema [Unknown]
  - Feeling drunk [Unknown]
  - Pyrexia [Unknown]
  - Asthenia [Unknown]
  - Infusion related reaction [Unknown]
